FAERS Safety Report 6539256-8 (Version None)
Quarter: 2010Q1

REPORT INFORMATION
  Report Type: 
  Country: None (occurrence: None)
  Receive Date: 20100115
  Receipt Date: 20100113
  Transmission Date: 20100710
  Serious: Yes (Death)
  Sender: FDA-Public Use
  Company Number: KR-JNJFOC-20091201545

PATIENT
  Age: 9 Year
  Sex: Male

DRUGS (1)
  1. DURAGESIC-100 [Suspect]
     Indication: ACCIDENTAL EXPOSURE
     Route: 062

REACTIONS (3)
  - ACCIDENTAL EXPOSURE [None]
  - DEPENDENCE [None]
  - DRUG DIVERSION [None]
